FAERS Safety Report 5191474-X (Version None)
Quarter: 2006Q4

REPORT INFORMATION
  Report Type: 
  Country: None (occurrence: None)
  Receive Date: 20061219
  Receipt Date: 20061208
  Transmission Date: 20070319
  Serious: Yes (Hospitalization)
  Sender: FDA-Public Use
  Company Number: GXBR2006US02136

PATIENT
  Age: 75 Year
  Sex: Female
  Weight: 72.6 kg

DRUGS (4)
  1. ATENOLOL [Suspect]
     Indication: HYPERTENSION
     Dosage: 100 MG, QD, ORAL
     Route: 048
     Dates: start: 20061101, end: 20061121
  2. LISINOPRIL [Concomitant]
  3. ALLOPURINOL [Concomitant]
  4. COLCHICINE (COLCHICINE) [Concomitant]

REACTIONS (6)
  - ATRIAL FIBRILLATION [None]
  - CHEST PAIN [None]
  - DIARRHOEA [None]
  - DRUG DISPENSING ERROR [None]
  - DYSPNOEA [None]
  - INCORRECT DOSE ADMINISTERED [None]
